FAERS Safety Report 15928458 (Version 2)
Quarter: 2019Q1

REPORT INFORMATION
  Report Type: Spontaneous
  Country: US (occurrence: US)
  Receive Date: 20190206
  Receipt Date: 20190208
  Transmission Date: 20190417
  Serious: Yes (Other)
  Sender: FDA-Public Use
  Company Number: US-SA-2019SA028953

PATIENT
  Age: 56 Year
  Sex: Female

DRUGS (2)
  1. PRALUENT [Suspect]
     Active Substance: ALIROCUMAB
     Indication: HYPERCHOLESTEROLAEMIA
     Dosage: 150 MG, QOW
     Route: 058
  2. REPATHA [Concomitant]
     Active Substance: EVOLOCUMAB

REACTIONS (11)
  - Uterine leiomyoma [Unknown]
  - Nausea [Unknown]
  - Pain [Unknown]
  - Hot flush [Unknown]
  - Anorectal disorder [Unknown]
  - Inflammatory carcinoma of the breast [Unknown]
  - Bladder disorder [Unknown]
  - Dysmenorrhoea [Unknown]
  - Vascular compression [Unknown]
  - Blood cholesterol increased [Unknown]
  - Feeling abnormal [Unknown]
